FAERS Safety Report 13648524 (Version 1)
Quarter: 2017Q2

REPORT INFORMATION
  Report Type: Spontaneous
  Country: JP (occurrence: JP)
  Receive Date: 20170613
  Receipt Date: 20170613
  Transmission Date: 20170830
  Serious: Yes (Other)
  Sender: FDA-Public Use
  Company Number: JP-MALLINCKRODT-T201700523

PATIENT
  Age: 65 Year
  Sex: Female

DRUGS (11)
  1. LANSOPRAZOLE. [Concomitant]
     Active Substance: LANSOPRAZOLE
  2. FENTANYL. [Concomitant]
     Active Substance: FENTANYL
     Indication: CANCER PAIN
     Dosage: 4 MG
     Route: 051
  3. METHADONE [Suspect]
     Active Substance: METHADONE HYDROCHLORIDE
     Indication: CANCER PAIN
     Dosage: 15 MG DAILY DOSE
     Route: 048
     Dates: start: 20170124, end: 20170201
  4. MAGMITT [Concomitant]
     Active Substance: MAGNESIUM OXIDE
     Route: 065
  5. PRIMPERAN [Concomitant]
     Active Substance: METOCLOPRAMIDE HYDROCHLORIDE
  6. NALOXONE HYDROCHLORIDE. [Concomitant]
     Active Substance: NALOXONE HYDROCHLORIDE
     Indication: ADVERSE EVENT
     Route: 051
  7. CONSTAN [Concomitant]
     Active Substance: ALPRAZOLAM
  8. ZYPREXA [Concomitant]
     Active Substance: OLANZAPINE
  9. ALPRAZOLAM. [Concomitant]
     Active Substance: ALPRAZOLAM
  10. BROTIZOLAM [Concomitant]
     Active Substance: BROTIZOLAM
     Route: 065
  11. LOXOPROFEN [Concomitant]
     Active Substance: LOXOPROFEN

REACTIONS (4)
  - Nausea [Unknown]
  - Delirium [Recovered/Resolved]
  - Somnolence [Recovered/Resolved]
  - Respiratory depression [Recovered/Resolved]

NARRATIVE: CASE EVENT DATE: 20170201
